FAERS Safety Report 7496605-4 (Version None)
Quarter: 2011Q2

REPORT INFORMATION
  Report Type: 
  Country: None (occurrence: None)
  Receive Date: 20110520
  Receipt Date: 20110520
  Transmission Date: 20111010
  Serious: Yes (Life-Threatening, Hospitalization, Other)
  Sender: FDA-Public Use
  Company Number: None

PATIENT
  Age: 40 Year
  Sex: Female
  Weight: 63.5036 kg

DRUGS (1)
  1. BUPROPION HCL [Suspect]
     Indication: PREMENSTRUAL SYNDROME
     Dosage: 150MG 1X DAILY PO
     Route: 048
     Dates: start: 20110418, end: 20110510

REACTIONS (7)
  - FATIGUE [None]
  - SUICIDAL IDEATION [None]
  - DEPRESSION [None]
  - HYPERSOMNIA [None]
  - CONDITION AGGRAVATED [None]
  - ANXIETY [None]
  - FEAR [None]
